FAERS Safety Report 8759069 (Version 1)
Quarter: 2012Q4

REPORT INFORMATION
  Report Type: 
  Country: US (occurrence: US)
  Receive Date: 20120829
  Receipt Date: 20120829
  Transmission Date: 20130627
  Serious: Yes (Hospitalization, Other)
  Sender: FDA-Public Use
  Company Number: US-PAR PHARMACEUTICAL, INC-2012SCPR004582

PATIENT

DRUGS (1)
  1. METRONIDAZOLE [Suspect]
     Indication: NON-ALCOHOLIC STEATOHEPATITIS
     Dosage: UNK, Unknown
     Route: 065

REACTIONS (3)
  - Toxic encephalopathy [Recovering/Resolving]
  - Cerebral haemorrhage [Unknown]
  - Oromandibular dystonia [Recovering/Resolving]
